FAERS Safety Report 8106366-3 (Version None)
Quarter: 2012Q1

REPORT INFORMATION
  Report Type: 
  Country: None (occurrence: None)
  Receive Date: 20120202
  Receipt Date: 20120130
  Transmission Date: 20120608
  Serious: Yes (Hospitalization)
  Sender: FDA-Public Use
  Company Number: IL-JNJFOC-20120113016

PATIENT
  Age: 60 Year
  Sex: Female

DRUGS (1)
  1. XEPLION [Suspect]
     Indication: PRODUCT USED FOR UNKNOWN INDICATION
     Route: 030

REACTIONS (5)
  - PSYCHOTIC DISORDER [None]
  - RESTLESSNESS [None]
  - TREMOR [None]
  - AKATHISIA [None]
  - MUSCULOSKELETAL STIFFNESS [None]
